FAERS Safety Report 5681493-9 (Version None)
Quarter: 2008Q1

REPORT INFORMATION
  Report Type: 
  Country: None (occurrence: None)
  Receive Date: 20080326
  Receipt Date: 20070206
  Transmission Date: 20080703
  Serious: No
  Sender: FDA-Public Use
  Company Number: US-BAYER-US-2007-004608

PATIENT
  Age: 22 Year
  Sex: Female
  Weight: 50 kg

DRUGS (2)
  1. MIRENA [Suspect]
     Indication: CONTRACEPTION
     Dates: start: 20070202, end: 20070202
  2. CELEXA [Concomitant]

REACTIONS (3)
  - ABDOMINAL PAIN [None]
  - COMPLICATION OF DEVICE INSERTION [None]
  - VAGINAL HAEMORRHAGE [None]
